FAERS Safety Report 16137972 (Version 1)
Quarter: 2019Q1

REPORT INFORMATION
  Report Type: Spontaneous
  Country: US (occurrence: US)
  Receive Date: 20190330
  Receipt Date: 20190330
  Transmission Date: 20190418
  Serious: No
  Sender: FDA-Public Use
  Company Number: US-GLAXOSMITHKLINE-US2019054051

PATIENT
  Sex: Male

DRUGS (1)
  1. CARVEDILOL. [Suspect]
     Active Substance: CARVEDILOL
     Indication: HEART VALVE INCOMPETENCE
     Dosage: 25 MG, BID
     Route: 048

REACTIONS (2)
  - Nausea [Recovered/Resolved]
  - Product substitution issue [Unknown]
